FAERS Safety Report 7684244-1 (Version None)
Quarter: 2011Q3

REPORT INFORMATION
  Report Type: 
  Country: None (occurrence: None)
  Receive Date: 20110815
  Receipt Date: 20110720
  Transmission Date: 20111222
  Serious: Yes (Hospitalization)
  Sender: FDA-Public Use
  Company Number: GB-GENENTECH-321793

PATIENT
  Sex: Male
  Weight: 100.1 kg

DRUGS (10)
  1. METFORMIN HCL [Concomitant]
     Indication: PRODUCT USED FOR UNKNOWN INDICATION
     Dosage: UNK
     Dates: start: 20110210
  2. LUCENTIS [Suspect]
     Dosage: UNK UNK, UNKNOWN
     Route: 031
     Dates: start: 20110617
  3. ACYCLOVIR [Concomitant]
     Indication: PRODUCT USED FOR UNKNOWN INDICATION
     Dosage: UNK
     Dates: start: 20110414
  4. LUCENTIS [Suspect]
     Indication: DIABETIC RETINAL OEDEMA
     Dosage: UNK UNK, UNKNOWN
     Route: 031
     Dates: start: 20110318
  5. LUCENTIS [Suspect]
     Dosage: UNK UNK, UNKNOWN
     Route: 031
     Dates: start: 20110415
  6. INSULIN [Suspect]
     Indication: PRODUCT USED FOR UNKNOWN INDICATION
  7. NOVORAPID [Concomitant]
     Indication: PRODUCT USED FOR UNKNOWN INDICATION
     Dosage: UNK
     Dates: start: 20110210
  8. ACETAMINOPHEN AND CODEINE PHOSPHATE [Concomitant]
     Indication: PRODUCT USED FOR UNKNOWN INDICATION
     Dosage: UNK
     Dates: start: 20110414
  9. LUCENTIS [Suspect]
     Dosage: UNK UNK, UNKNOWN
     Route: 031
     Dates: start: 20110513
  10. LANTUS [Concomitant]
     Indication: PRODUCT USED FOR UNKNOWN INDICATION
     Dosage: UNK
     Dates: start: 20110210

REACTIONS (1)
  - PSYCHIATRIC SYMPTOM [None]
